FAERS Safety Report 9408443 (Version 3)
Quarter: 2013Q4

REPORT INFORMATION
  Report Type: Spontaneous
  Country: ES (occurrence: None)
  Receive Date: 20130716
  Receipt Date: 20131015
  Transmission Date: 20140711
  Serious: Yes (Hospitalization)
  Sender: FDA-Public Use
  Company Number: 2013ES001921

PATIENT
  Age: 74 Year
  Sex: Female

DRUGS (9)
  1. PONATINIB [Suspect]
     Indication: CHRONIC MYELOID LEUKAEMIA
     Route: 048
     Dates: start: 20130425, end: 20130616
  2. HYDREA (HYDROXYCARBAMIDE) [Concomitant]
  3. DIOSMIN W/HESPERIDIN (DIOSMIN W/HESPERIDIN [Concomitant]
  4. FUROSEMIDE (FUROSEMIDE) [Concomitant]
  5. OMEPRAZOLE (OMEPRAZOLE) [Concomitant]
  6. LOSARTAN (LOSARTAN) [Concomitant]
  7. LORAZEPAM (LORAZEPAM) [Concomitant]
  8. CLEXANE (ENOXAPARIN SODIUM) [Concomitant]
  9. CODIOVAN (HYDROCHLOROTHIAZIDE, VALSARTAN) [Concomitant]

REACTIONS (5)
  - Dizziness [None]
  - Atrial fibrillation [None]
  - Blood pressure systolic increased [None]
  - Cardiomegaly [None]
  - Vertigo positional [None]
